FAERS Safety Report 18104490 (Version 1)
Quarter: 2020Q3

REPORT INFORMATION
  Report Type: Spontaneous
  Country: US (occurrence: US)
  Receive Date: 20200803
  Receipt Date: 20200803
  Transmission Date: 20201103
  Serious: Yes (Death, Disabling)
  Sender: FDA-Public Use
  Company Number: None

PATIENT
  Age: 30 Year
  Sex: Male
  Weight: 145.35 kg

DRUGS (13)
  1. METFORMIN [Concomitant]
     Active Substance: METFORMIN HYDROCHLORIDE
  2. RABEPRAZOLE [Concomitant]
     Active Substance: RABEPRAZOLE
  3. LORATADINE. [Concomitant]
     Active Substance: LORATADINE
  4. CLOZAPINE 25 MG + 100 MG [Suspect]
     Active Substance: CLOZAPINE
     Indication: SCHIZOPHRENIA
     Dosage: ?          QUANTITY:3 TABLET(S);?
     Route: 048
  5. CLOZAPINE. [Concomitant]
     Active Substance: CLOZAPINE
  6. CITALOPRAM [Concomitant]
     Active Substance: CITALOPRAM HYDROBROMIDE
  7. ARIPIPRAZOLE. [Concomitant]
     Active Substance: ARIPIPRAZOLE
  8. DESMOPRESSIN [Concomitant]
     Active Substance: DESMOPRESSIN
  9. LINZESS [Concomitant]
     Active Substance: LINACLOTIDE
  10. FISH OIL [Concomitant]
     Active Substance: FISH OIL
  11. TOPAMAX [Concomitant]
     Active Substance: TOPIRAMATE
  12. LISINOPRIL. [Concomitant]
     Active Substance: LISINOPRIL
  13. TYLENOL [Concomitant]
     Active Substance: ACETAMINOPHEN

REACTIONS (4)
  - Product prescribing issue [None]
  - Incorrect dose administered [None]
  - Seizure [None]
  - Drug monitoring procedure not performed [None]

NARRATIVE: CASE EVENT DATE: 20190901
